FAERS Safety Report 8844503 (Version 1)
Quarter: 2012Q4

REPORT INFORMATION
  Report Type: Spontaneous
  Country: DE (occurrence: None)
  Receive Date: 20121012
  Receipt Date: 20121012
  Transmission Date: 20130627
  Serious: Yes (Other)
  Sender: FDA-Public Use
  Company Number: NGX_01379_2012

PATIENT
  Age: 77 Year
  Sex: Female
  Weight: 70 kg

DRUGS (2)
  1. QUTENZA [Suspect]
     Indication: COMPLEX REGIONAL PAIN SYNDROME
     Dosage: 1DF [patch, applied to the right hand and finger] Topical
     Route: 061
     Dates: start: 20120911, end: 20120911
  2. CITALOPRAM [Concomitant]

REACTIONS (4)
  - Application site pain [None]
  - Application site erythema [None]
  - Intentional drug misuse [None]
  - Hypersensitivity [None]
